FAERS Safety Report 5277567-7 (Version None)
Quarter: 2007Q1

REPORT INFORMATION
  Report Type: 
  Country: None (occurrence: None)
  Receive Date: 20070327
  Receipt Date: 20070315
  Transmission Date: 20070707
  Serious: Yes (Other)
  Sender: FDA-Public Use
  Company Number: ES-SHR-ES-2007-009231

PATIENT
  Age: 51 Year
  Sex: Male
  Weight: 85 kg

DRUGS (10)
  1. MAGNEVIST [Suspect]
     Dosage: 40 ML, 1 DOSE
     Route: 042
     Dates: start: 20061212, end: 20061212
  2. MASTICAL [Concomitant]
  3. ALLOPURINOL [Concomitant]
  4. ARANESP [Concomitant]
  5. MANIDIPINE HYDROCHLORIDE [Concomitant]
  6. IRBESARTAN [Concomitant]
  7. LYMETEL [Concomitant]
  8. OMEPRAZOLE [Concomitant]
  9. SEGURIL [Concomitant]
  10. INSULIN [Concomitant]

REACTIONS (1)
  - NEPHROGENIC FIBROSING DERMOPATHY [None]
